FAERS Safety Report 8430170-X (Version None)
Quarter: 2012Q2

REPORT INFORMATION
  Report Type: 
  Country: None (occurrence: None)
  Receive Date: 20120612
  Receipt Date: 20120531
  Transmission Date: 20120825
  Serious: No
  Sender: FDA-Public Use
  Company Number: US-ASTRAZENECA-2012SE36848

PATIENT
  Age: 58 Year
  Sex: Female

DRUGS (3)
  1. PROVENTIL [Concomitant]
  2. SYMBICORT [Suspect]
     Dosage: 2 PUFFS DAILY
     Route: 055
  3. SYMBICORT [Suspect]
     Dosage: 4 PUFFS DAILY
     Route: 055

REACTIONS (4)
  - COUGH [None]
  - THERAPY REGIMEN CHANGED [None]
  - DYSPNOEA [None]
  - OFF LABEL USE [None]
